FAERS Safety Report 23526590 (Version 2)
Quarter: 2024Q2

REPORT INFORMATION
  Report Type: Spontaneous
  Country: AU (occurrence: AU)
  Receive Date: 20240215
  Receipt Date: 20240618
  Transmission Date: 20240715
  Serious: Yes (Life-Threatening, Hospitalization, Other)
  Sender: FDA-Public Use
  Company Number: None

PATIENT
  Sex: Female

DRUGS (27)
  1. ACETAMINOPHEN [Interacting]
     Active Substance: ACETAMINOPHEN
     Indication: Product used for unknown indication
     Dosage: UNK
     Route: 065
  2. ACETAMINOPHEN [Interacting]
     Active Substance: ACETAMINOPHEN
     Dosage: UNK
     Route: 065
  3. ACETAMINOPHEN [Interacting]
     Active Substance: ACETAMINOPHEN
     Dosage: OVERDOSE: UNKNOWN DOSE OF PARACETAMOL
     Route: 065
  4. AMLODIPINE [Interacting]
     Active Substance: AMLODIPINE BESYLATE
     Indication: Product used for unknown indication
     Route: 065
  5. ESCITALOPRAM OXALATE [Interacting]
     Active Substance: ESCITALOPRAM OXALATE
     Indication: Intentional overdose
     Dosage: OVERDOSE: UNKNOWN DOSE
     Route: 065
  6. ESCITALOPRAM OXALATE [Interacting]
     Active Substance: ESCITALOPRAM OXALATE
     Indication: Suicide attempt
  7. ESOMEPRAZOLE MAGNESIUM [Interacting]
     Active Substance: ESOMEPRAZOLE MAGNESIUM
     Indication: Suicide attempt
     Dosage: OVERDOSE: UNKNOWN DOSE/PROLONGED-RELEASE TABLET [PDF-10226000]
     Route: 048
  8. ESOMEPRAZOLE MAGNESIUM [Interacting]
     Active Substance: ESOMEPRAZOLE MAGNESIUM
     Indication: Intentional overdose
  9. FLUOXETINE HYDROCHLORIDE [Interacting]
     Active Substance: FLUOXETINE HYDROCHLORIDE
     Indication: Product used for unknown indication
     Route: 065
  10. FLUOXETINE HYDROCHLORIDE [Interacting]
     Active Substance: FLUOXETINE HYDROCHLORIDE
     Dosage: OVERDOSE: UNKNOWN DOSE
     Route: 065
  11. MOCLOBEMIDE [Interacting]
     Active Substance: MOCLOBEMIDE
     Indication: Suicide attempt
     Route: 065
  12. MOCLOBEMIDE [Interacting]
     Active Substance: MOCLOBEMIDE
     Indication: Intentional overdose
     Dosage: OVERDOSE: UNKNOWN DOSE
     Route: 065
  13. TRAMADOL HYDROCHLORIDE [Interacting]
     Active Substance: TRAMADOL HYDROCHLORIDE
     Indication: Product used for unknown indication
     Route: 065
  14. TRAMADOL HYDROCHLORIDE [Interacting]
     Active Substance: TRAMADOL HYDROCHLORIDE
     Dosage: OVERDOSE: UNKNOWN DOSE
     Route: 065
  15. VALSARTAN [Interacting]
     Active Substance: VALSARTAN
     Indication: Suicide attempt
     Route: 065
  16. VALSARTAN [Interacting]
     Active Substance: VALSARTAN
     Indication: Intentional overdose
     Route: 065
  17. VENLAFAXINE HYDROCHLORIDE [Interacting]
     Active Substance: VENLAFAXINE HYDROCHLORIDE
     Indication: Intentional overdose
     Route: 065
  18. VENLAFAXINE HYDROCHLORIDE [Interacting]
     Active Substance: VENLAFAXINE HYDROCHLORIDE
     Indication: Suicide attempt
     Dosage: OVERDOSE: UNKNOWN DOSE
     Route: 065
  19. XELJANZ [Interacting]
     Active Substance: TOFACITINIB CITRATE
     Indication: Suicide attempt
     Dosage: OVERDOSE: UNKNOWN DOSE
     Route: 065
  20. XELJANZ [Interacting]
     Active Substance: TOFACITINIB CITRATE
     Indication: Intentional overdose
  21. SEROTONIN [Interacting]
     Active Substance: SEROTONIN
     Indication: Product used for unknown indication
     Route: 065
  22. ESCITALOPRAM [Interacting]
     Active Substance: ESCITALOPRAM OXALATE
     Indication: Product used for unknown indication
     Route: 065
  23. AMLODIPINE BESYLATE [Interacting]
     Active Substance: AMLODIPINE BESYLATE
     Indication: Intentional overdose
     Route: 065
  24. AMLODIPINE BESYLATE [Interacting]
     Active Substance: AMLODIPINE BESYLATE
     Indication: Suicide attempt
  25. ALCOHOL [Suspect]
     Active Substance: ALCOHOL
     Indication: Product used for unknown indication
     Route: 065
  26. ESOMEPRAZOLE MAGNESIUM [Interacting]
     Active Substance: ESOMEPRAZOLE MAGNESIUM
     Indication: Intentional overdose
     Route: 065
  27. ESOMEPRAZOLE MAGNESIUM [Interacting]
     Active Substance: ESOMEPRAZOLE MAGNESIUM
     Indication: Suicide attempt
     Route: 048

REACTIONS (9)
  - Acute kidney injury [Unknown]
  - Intentional overdose [Unknown]
  - Major depression [Unknown]
  - Metabolic acidosis [Unknown]
  - Physical deconditioning [Unknown]
  - Serotonin syndrome [Unknown]
  - Suicide attempt [Unknown]
  - Intentional product misuse [Unknown]
  - Pleural effusion [Unknown]
